FAERS Safety Report 7300474-2 (Version None)
Quarter: 2011Q1

REPORT INFORMATION
  Report Type: 
  Country: None (occurrence: None)
  Receive Date: 20110217
  Receipt Date: 20110209
  Transmission Date: 20110831
  Serious: Yes (Hospitalization, Other)
  Sender: FDA-Public Use
  Company Number: PHHO2009DE09404

PATIENT
  Sex: Male
  Weight: 70 kg

DRUGS (12)
  1. SIMVASTATIN [Suspect]
     Indication: BLOOD CHOLESTEROL
     Dosage: UNK
     Dates: start: 20090612, end: 20110127
  2. EVEROLIMUS [Suspect]
     Indication: HEART TRANSPLANT
     Dosage: 0.75 MG, BID
     Route: 048
     Dates: start: 20090523, end: 20090810
  3. CYCLOPHOSPHAMIDE [Suspect]
     Indication: HEART TRANSPLANT
  4. KALINOR [Concomitant]
  5. TORSEMIDE [Concomitant]
  6. LEVOTHYROXINE SODIUM [Concomitant]
  7. MYFORTIC [Concomitant]
  8. PANTOPRAZOLE [Concomitant]
  9. DILTIAZEM [Concomitant]
  10. ENALAPRIL [Concomitant]
  11. COTRIM [Concomitant]
  12. EVEROLIMUS [Suspect]
     Dosage: 0.25 MG, BID
     Route: 048
     Dates: start: 20110121, end: 20110125

REACTIONS (5)
  - BLOOD CREATINE PHOSPHOKINASE MB INCREASED [None]
  - MEDICATION ERROR [None]
  - BLOOD CREATININE INCREASED [None]
  - RENAL FAILURE CHRONIC [None]
  - BLOOD CREATINE PHOSPHOKINASE INCREASED [None]
